FAERS Safety Report 5674874-0 (Version None)
Quarter: 2008Q1

REPORT INFORMATION
  Report Type: 
  Country: None (occurrence: None)
  Receive Date: 20080320
  Receipt Date: 20080318
  Transmission Date: 20080703
  Serious: Yes (Other)
  Sender: FDA-Public Use
  Company Number: JP-ASTRAZENECA-2008AP01895

PATIENT
  Age: 24158 Day
  Sex: Female

DRUGS (4)
  1. OMEPRAL TABLETS [Suspect]
     Indication: GASTROOESOPHAGEAL REFLUX DISEASE
     Route: 048
     Dates: start: 20080304, end: 20080306
  2. MUCODYNE [Concomitant]
     Indication: BRONCHIECTASIS
     Dosage: STARTED BEFORE MAY 2005
     Route: 048
  3. MUCOSOLVAN [Concomitant]
     Indication: BRONCHIECTASIS
     Dosage: STARTED BEFORE MAY 2005
     Route: 048
  4. SELBEX [Concomitant]
     Indication: BRONCHIECTASIS
     Dosage: STARTED BEFORE MAY 2005
     Route: 048

REACTIONS (3)
  - HAEMATURIA [None]
  - HEADACHE [None]
  - MYALGIA [None]
